FAERS Safety Report 25111763 (Version 1)
Quarter: 2025Q1

REPORT INFORMATION
  Report Type: Report from Study
  Country: CA (occurrence: CA)
  Receive Date: 20250324
  Receipt Date: 20250324
  Transmission Date: 20250408
  Serious: Yes (Other)
  Sender: NOVARTIS
  Company Number: CA-002147023-NVSC2025CA006967

PATIENT
  Age: 68 Year
  Sex: Male

DRUGS (1)
  1. ILARIS [Suspect]
     Active Substance: CANAKINUMAB
     Indication: Familial cold autoinflammatory syndrome
     Route: 058
     Dates: start: 20240417

REACTIONS (4)
  - Pelvic fracture [Unknown]
  - Pneumonia [Unknown]
  - Fall [Unknown]
  - Wound infection [Unknown]
